FAERS Safety Report 14393655 (Version 1)
Quarter: 2018Q1

REPORT INFORMATION
  Report Type: Spontaneous
  Country: BR (occurrence: BR)
  Receive Date: 20180116
  Receipt Date: 20180116
  Transmission Date: 20180509
  Serious: Yes (Other)
  Sender: FDA-Public Use
  Company Number: BR-MYLANLABS-2018M1002085

PATIENT
  Age: 38 Year
  Sex: Female

DRUGS (1)
  1. METHADONE [Suspect]
     Active Substance: METHADONE HYDROCHLORIDE
     Indication: TRIGEMINAL NEURALGIA
     Dosage: CRUSHED METHADONE PILL AND DILUTED IN WATER
     Route: 042

REACTIONS (3)
  - Pneumoconiosis [Recovering/Resolving]
  - Intentional product use issue [Recovering/Resolving]
  - Intentional product misuse [Recovering/Resolving]
